FAERS Safety Report 20203046 (Version 1)
Quarter: 2021Q4

REPORT INFORMATION
  Report Type: Spontaneous
  Country: CZ (occurrence: CZ)
  Receive Date: 20211218
  Receipt Date: 20211218
  Transmission Date: 20220303
  Serious: Yes (Hospitalization, Other)
  Sender: FDA-Public Use
  Company Number: CZ-002147023-NVSC2020CZ053640

PATIENT
  Sex: Female

DRUGS (8)
  1. TOPIRAMATE [Suspect]
     Active Substance: TOPIRAMATE
     Indication: Product used for unknown indication
     Dosage: 75 MILLIGRAM (25 MG-0-50MG)
     Route: 065
     Dates: start: 201804
  2. NYSTATIN [Concomitant]
     Active Substance: NYSTATIN
     Indication: Product used for unknown indication
     Dosage: UNK
     Route: 065
  3. METOCLOPRAMIDE [Concomitant]
     Active Substance: METOCLOPRAMIDE
     Indication: Product used for unknown indication
     Dosage: UNK
     Route: 065
  4. LAMOTRIGINE [Concomitant]
     Active Substance: LAMOTRIGINE
     Indication: Product used for unknown indication
     Dosage: 25 MILLIGRAM, ONCE A DAY
     Route: 065
  5. ASPIRIN [Concomitant]
     Active Substance: ASPIRIN
     Indication: Product used for unknown indication
     Dosage: UNK
     Route: 065
  6. VALPROATE SODIUM [Concomitant]
     Active Substance: VALPROATE SODIUM
     Indication: Product used for unknown indication
     Dosage: 750 MILLIGRAM, ONCE A DAY
     Route: 065
  7. DIHYDROERGOTAMINE MESYLATE [Concomitant]
     Active Substance: DIHYDROERGOTAMINE MESYLATE
     Indication: Product used for unknown indication
     Dosage: 1 MILLIGRAM, 3 TIMES A DAY
     Route: 041
  8. DIHYDROERGOTAMINE MESYLATE [Concomitant]
     Active Substance: DIHYDROERGOTAMINE MESYLATE
     Dosage: 0.5 MILLIGRAM (3-5 MIN)
     Route: 041

REACTIONS (5)
  - Status migrainosus [Unknown]
  - Headache [Recovering/Resolving]
  - Vision blurred [Not Recovered/Not Resolved]
  - Central nervous system lesion [Unknown]
  - Treatment failure [Unknown]

NARRATIVE: CASE EVENT DATE: 20181001
